FAERS Safety Report 21416081 (Version 1)
Quarter: 2022Q4

REPORT INFORMATION
  Report Type: Spontaneous
  Country: US (occurrence: US)
  Receive Date: 20221006
  Receipt Date: 20221006
  Transmission Date: 20230113
  Serious: No
  Sender: FDA-Public Use
  Company Number: US-ALLERGAN-2133363US

PATIENT
  Sex: Female

DRUGS (10)
  1. VRAYLAR [Suspect]
     Active Substance: CARIPRAZINE
     Indication: Bipolar disorder
     Dosage: 3 MG ONCE A DAY IN THE EVENING/AT NIGHT
     Route: 048
     Dates: start: 202108
  2. VRAYLAR [Suspect]
     Active Substance: CARIPRAZINE
     Indication: Tardive dyskinesia
  3. ZINC [Suspect]
     Active Substance: ZINC
     Indication: Product used for unknown indication
     Dosage: STOPPED TAKING ON AN EMPTY STOMACH AND STARTED EATING FIRST THING IN THE MORNING
  4. ZINC [Suspect]
     Active Substance: ZINC
     Dosage: IN THE MORNING WITHOUT EATING
  5. BUSPAR [Concomitant]
     Active Substance: BUSPIRONE HYDROCHLORIDE
  6. BUPROPION [Concomitant]
     Active Substance: BUPROPION
  7. LAMICTAL [Concomitant]
     Active Substance: LAMOTRIGINE
  8. LEVOTHYROXINE [Concomitant]
     Active Substance: LEVOTHYROXINE
  9. RISPERDAL [Concomitant]
     Active Substance: RISPERIDONE
  10. ISIBLOOM [Concomitant]
     Active Substance: DESOGESTREL\ETHINYL ESTRADIOL
     Indication: Contraception

REACTIONS (4)
  - Feeling abnormal [Recovered/Resolved]
  - Off label use [Unknown]
  - Headache [Recovered/Resolved]
  - Vomiting [Recovered/Resolved]

NARRATIVE: CASE EVENT DATE: 20210101
